FAERS Safety Report 14068655 (Version 2)
Quarter: 2017Q4

REPORT INFORMATION
  Report Type: Spontaneous
  Country: US (occurrence: US)
  Receive Date: 20171010
  Receipt Date: 20171103
  Transmission Date: 20180321
  Serious: No
  Sender: FDA-Public Use
  Company Number: US-PFIZER INC-2017434993

PATIENT
  Age: 67 Year
  Sex: Female
  Weight: 99 kg

DRUGS (1)
  1. IBRANCE [Suspect]
     Active Substance: PALBOCICLIB
     Indication: BREAST CANCER
     Dosage: 125 MG, CYCLIC (D 1-21 Q 28 D)
     Route: 048
     Dates: start: 20170918

REACTIONS (1)
  - Diarrhoea [Unknown]
